FAERS Safety Report 8303385 (Version 5)
Quarter: 2013Q3

REPORT INFORMATION
  Report Type: Spontaneous
  Country: US (occurrence: US)
  Receive Date: 20111220
  Receipt Date: 20130827
  Transmission Date: 20140515
  Serious: Yes (Other)
  Sender: FDA-Public Use
  Company Number: US-ROCHE-791791

PATIENT
  Age: 18 Year
  Sex: Female
  Weight: 61.29 kg

DRUGS (3)
  1. ACCUTANE [Suspect]
     Indication: ACNE
     Route: 048
     Dates: start: 200101, end: 200107
  2. ACCUTANE [Suspect]
     Indication: ACNE CYSTIC
     Route: 048
  3. ORTHO TRI-CYCLEN [Concomitant]

REACTIONS (11)
  - Colitis ulcerative [Unknown]
  - Inflammatory bowel disease [Unknown]
  - Anxiety [Unknown]
  - Anal fissure [Unknown]
  - Depression [Unknown]
  - Headache [Unknown]
  - Back pain [Unknown]
  - Lip dry [Unknown]
  - Dry skin [Unknown]
  - Myalgia [Unknown]
  - Nasal septum perforation [Unknown]
